FAERS Safety Report 8674859 (Version 2)
Quarter: 2012Q4

REPORT INFORMATION
  Report Type: 
  Country: JP (occurrence: JP)
  Receive Date: 20120720
  Receipt Date: 20121101
  Transmission Date: 20130627
  Serious: Yes (Hospitalization)
  Sender: FDA-Public Use
  Company Number: JP-AMGEN-JPNCT2012044817

PATIENT
  Age: 74 Year
  Sex: Male
  Weight: 53 kg

DRUGS (23)
  1. DARBEPOETIN ALFA [Suspect]
     Indication: NEPHROGENIC ANAEMIA
     Dosage: 30 mug, q2wk
     Route: 058
     Dates: start: 20110623, end: 20111208
  2. DARBEPOETIN ALFA [Suspect]
     Dosage: 30 mug, qwk
     Route: 058
     Dates: start: 20120116, end: 20120116
  3. DARBEPOETIN ALFA [Suspect]
     Dosage: 20 mug, qwk
     Route: 040
     Dates: start: 20120305, end: 20120326
  4. DARBEPOETIN ALFA [Suspect]
     Dosage: 30 mug, qwk
     Route: 040
     Dates: start: 20120402, end: 20120423
  5. DARBEPOETIN ALFA [Suspect]
     Dosage: 40 mug, qwk
     Route: 040
     Dates: start: 20120430, end: 20120618
  6. CONIEL [Concomitant]
     Dosage: UNK
     Route: 048
  7. BLOPRESS [Concomitant]
     Dosage: UNK
     Route: 048
  8. ALFAROL [Concomitant]
     Dosage: UNK
     Route: 048
  9. ADALAT L [Concomitant]
     Dosage: UNK
     Route: 048
  10. AMLODIPINE [Concomitant]
     Dosage: UNK
     Route: 048
  11. SODIUM BICARBONATE [Concomitant]
     Dosage: UNK
     Route: 048
  12. RENIVACE [Concomitant]
     Dosage: UNK
     Route: 048
  13. NATRIX [Concomitant]
     Indication: GLOMERULONEPHRITIS CHRONIC
     Dosage: UNK
     Route: 048
  14. LASIX [Concomitant]
     Indication: GLOMERULONEPHRITIS CHRONIC
     Dosage: UNK
     Route: 048
  15. ARGAMATE [Concomitant]
     Dosage: UNK
     Route: 048
  16. KREMEZIN [Concomitant]
     Indication: GLOMERULONEPHRITIS CHRONIC
     Dosage: UNK
     Route: 048
  17. ADALAT CR [Concomitant]
     Dosage: UNK
     Route: 048
  18. ROCALTROL [Concomitant]
     Dosage: UNK
     Route: 048
  19. ARTIST [Concomitant]
     Dosage: UNK
     Route: 048
  20. AVAPRO [Concomitant]
     Dosage: UNK
     Route: 048
  21. CALBLOCK [Concomitant]
     Dosage: UNK
     Route: 048
  22. CARBADOGEN [Concomitant]
     Dosage: UNK
     Route: 048
  23. NICORANTA [Concomitant]
     Dosage: UNK
     Route: 048

REACTIONS (2)
  - Myocardial ischaemia [Recovered/Resolved]
  - Cardiac failure acute [Recovered/Resolved]
